FAERS Safety Report 11699782 (Version 1)
Quarter: 2015Q4

REPORT INFORMATION
  Report Type: Spontaneous
  Country: GB (occurrence: GB)
  Receive Date: 20151105
  Receipt Date: 20151105
  Transmission Date: 20160304
  Serious: Yes (Other)
  Sender: FDA-Public Use
  Company Number: GB-TEVA-605008ACC

PATIENT
  Sex: Female

DRUGS (2)
  1. AMOXICILLIN. [Suspect]
     Active Substance: AMOXICILLIN
     Indication: PRODUCT USED FOR UNKNOWN INDICATION
     Route: 065
  2. SANDOZ LTD CLARITHROMYCIN [Suspect]
     Active Substance: CLARITHROMYCIN
     Indication: PRODUCT USED FOR UNKNOWN INDICATION
     Route: 065

REACTIONS (5)
  - Toxicity to various agents [Unknown]
  - Drug ineffective [Unknown]
  - Dysgeusia [Unknown]
  - Product colour issue [Unknown]
  - Product packaging issue [Unknown]
